FAERS Safety Report 14402895 (Version 1)
Quarter: 2018Q1

REPORT INFORMATION
  Report Type: Spontaneous
  Country: US (occurrence: US)
  Receive Date: 20180117
  Receipt Date: 20180117
  Transmission Date: 20180509
  Serious: No
  Sender: FDA-Public Use
  Company Number: US-MYLANLABS-2017M1083958

PATIENT
  Age: 52 Year
  Sex: Female
  Weight: 52 kg

DRUGS (3)
  1. BUPROPIONHYDROCHLORID HEXAL [Concomitant]
     Active Substance: BUPROPION HYDROCHLORIDE
     Indication: PRODUCT USED FOR UNKNOWN INDICATION
  2. GLATIRAMER ACETATE INJECTION [Suspect]
     Active Substance: GLATIRAMER ACETATE
     Indication: MULTIPLE SCLEROSIS
     Dosage: UNK
     Route: 058
     Dates: start: 20171222
  3. VITAMIN D3 [Concomitant]
     Active Substance: CHOLECALCIFEROL
     Indication: PRODUCT USED FOR UNKNOWN INDICATION

REACTIONS (5)
  - Injection site reaction [Not Recovered/Not Resolved]
  - Injection site pain [Not Recovered/Not Resolved]
  - Injection site movement impairment [Not Recovered/Not Resolved]
  - Urticaria [Not Recovered/Not Resolved]
  - Injection site erythema [Not Recovered/Not Resolved]

NARRATIVE: CASE EVENT DATE: 20171222
